FAERS Safety Report 9069856 (Version 1)
Quarter: 2013Q1

REPORT INFORMATION
  Report Type: Spontaneous
  Country: US (occurrence: US)
  Receive Date: 20130215
  Receipt Date: 20130215
  Transmission Date: 20140127
  Serious: Yes (Hospitalization, Other)
  Sender: FDA-Public Use
  Company Number: CHPA2013US002827

PATIENT
  Sex: Female

DRUGS (2)
  1. PRIVATE LABEL [Suspect]
     Indication: SMOKING CESSATION THERAPY
     Dosage: 21 MG, QD
     Route: 062
  2. INSULIN [Concomitant]
     Indication: DIABETES MELLITUS
     Dosage: 4 SHOTS PER MONTH

REACTIONS (7)
  - Myocardial infarction [Unknown]
  - Pneumonia [Unknown]
  - Breast cancer [Unknown]
  - Cardiac failure [Unknown]
  - Pain in extremity [Recovered/Resolved]
  - Blister [Recovered/Resolved]
  - Application site erythema [Recovered/Resolved]
